FAERS Safety Report 16383209 (Version 1)
Quarter: 2019Q2

REPORT INFORMATION
  Report Type: Spontaneous
  Country: US (occurrence: US)
  Receive Date: 20190514
  Receipt Date: 20190514
  Transmission Date: 20190711
  Serious: Yes (Hospitalization)
  Sender: FDA-Public Use
  Company Number: None

PATIENT
  Age: 64 Year
  Sex: Male

DRUGS (2)
  1. CLINDAMYCIN. [Suspect]
     Active Substance: CLINDAMYCIN
     Indication: OSTEONECROSIS OF JAW
     Route: 048
     Dates: start: 20190411, end: 20190417
  2. ABEMACICLIB [Suspect]
     Active Substance: ABEMACICLIB
     Indication: NEOPLASM MALIGNANT
     Route: 048
     Dates: start: 20190228, end: 20190417

REACTIONS (4)
  - Cardiac disorder [None]
  - Clostridial sepsis [None]
  - Neutropenic sepsis [None]
  - Clostridium difficile colitis [None]

NARRATIVE: CASE EVENT DATE: 20190411
